FAERS Safety Report 23914484 (Version 1)
Quarter: 2024Q2

REPORT INFORMATION
  Report Type: Spontaneous
  Country: RS (occurrence: RS)
  Receive Date: 20240529
  Receipt Date: 20240529
  Transmission Date: 20240716
  Serious: Yes (Hospitalization)
  Sender: FDA-Public Use
  Company Number: RS-SUN PHARMACEUTICAL INDUSTRIES LTD-2024R1-448523

PATIENT
  Age: 31 Year
  Sex: Male

DRUGS (1)
  1. PROPYLTHIOURACIL [Suspect]
     Active Substance: PROPYLTHIOURACIL
     Indication: Toxic goitre
     Dosage: 600 MILLIGRAM, DAILY
     Route: 065

REACTIONS (2)
  - Hand-foot-and-mouth disease [Unknown]
  - Vasculitis [Unknown]
